FAERS Safety Report 20515064 (Version 1)
Quarter: 2022Q1

REPORT INFORMATION
  Report Type: Spontaneous
  Country: US (occurrence: US)
  Receive Date: 20220224
  Receipt Date: 20220224
  Transmission Date: 20220423
  Serious: Yes (Other)
  Sender: FDA-Public Use
  Company Number: US-TEVA-2022-US-2009387

PATIENT
  Age: 80 Year
  Sex: Male

DRUGS (6)
  1. PREDNISONE [Suspect]
     Active Substance: PREDNISONE
     Indication: Cystoid macular oedema
     Dosage: 2.5-7.5 MG
     Route: 048
  2. TRIAMCINOLONE ACETONIDE [Suspect]
     Active Substance: TRIAMCINOLONE ACETONIDE
     Indication: Cystoid macular oedema
     Route: 050
  3. KENALOG [Suspect]
     Active Substance: TRIAMCINOLONE ACETONIDE
     Indication: Cystoid macular oedema
     Route: 050
  4. BEVACIZUMAB [Suspect]
     Active Substance: BEVACIZUMAB
     Indication: Cystoid macular oedema
     Route: 050
  5. RANIBIZUMAB [Suspect]
     Active Substance: RANIBIZUMAB
     Indication: Cystoid macular oedema
     Route: 050
  6. PEGINTERFERON ALFA-2A [Suspect]
     Active Substance: PEGINTERFERON ALFA-2A
     Indication: Cystoid macular oedema
     Dosage: 180 MG ONCE IN A WEEK
     Route: 058

REACTIONS (8)
  - Fatigue [Unknown]
  - Headache [Unknown]
  - Blood potassium decreased [Unknown]
  - Dyspnoea [Unknown]
  - Injection site reaction [Unknown]
  - Malaise [Unknown]
  - Influenza like illness [Unknown]
  - Treatment failure [Unknown]
